FAERS Safety Report 10174198 (Version 1)
Quarter: 2014Q2

REPORT INFORMATION
  Report Type: Spontaneous
  Country: US (occurrence: None)
  Receive Date: 20140514
  Receipt Date: 20140514
  Transmission Date: 20141212
  Serious: No
  Sender: FDA-Public Use
  Company Number: None

PATIENT
  Age: 67 Year
  Sex: Male
  Weight: 86.18 kg

DRUGS (1)
  1. EFFIENT [Suspect]
     Indication: STENT PLACEMENT
     Dosage: 1
     Route: 048

REACTIONS (4)
  - Fatigue [None]
  - Asthenia [None]
  - Feeling abnormal [None]
  - Post procedural complication [None]
